FAERS Safety Report 23426865 (Version 5)
Quarter: 2025Q3

REPORT INFORMATION
  Report Type: Spontaneous
  Country: CA (occurrence: CA)
  Receive Date: 20240122
  Receipt Date: 20250731
  Transmission Date: 20251021
  Serious: Yes (Death, Life-Threatening, Hospitalization, Disabling, Other)
  Sender: CHATTEM
  Company Number: CA-SA-2023SA071578

PATIENT
  Age: 44 Year
  Sex: Female
  Weight: 78 kg

DRUGS (10)
  1. HYDROCORTISONE [Suspect]
     Active Substance: HYDROCORTISONE
     Indication: Rheumatoid arthritis
     Route: 061
  2. HYDROCORTISONE [Suspect]
     Active Substance: HYDROCORTISONE
     Indication: Product used for unknown indication
     Route: 065
  3. HYDROCORTISONE [Suspect]
     Active Substance: HYDROCORTISONE
     Route: 003
  4. HYDROCORTISONE [Suspect]
     Active Substance: HYDROCORTISONE
  5. HYDROCORTISONE [Suspect]
     Active Substance: HYDROCORTISONE
  6. HYDROCORTISONE [Suspect]
     Active Substance: HYDROCORTISONE
     Route: 003
  7. HYDROCORTISONE [Suspect]
     Active Substance: HYDROCORTISONE
  8. HYDROCORTISONE [Suspect]
     Active Substance: HYDROCORTISONE
  9. HYDROCORTISONE [Suspect]
     Active Substance: HYDROCORTISONE
     Route: 061
  10. HYDROCORTISONE [Suspect]
     Active Substance: HYDROCORTISONE
     Route: 061

REACTIONS (4)
  - C-reactive protein [Fatal]
  - Facet joint syndrome [Fatal]
  - Deep vein thrombosis postoperative [Fatal]
  - Bone erosion [Fatal]
